FAERS Safety Report 10073969 (Version 1)
Quarter: 2014Q2

REPORT INFORMATION
  Report Type: Spontaneous
  Country: US (occurrence: US)
  Receive Date: 20140411
  Receipt Date: 20140411
  Transmission Date: 20141212
  Serious: No
  Sender: FDA-Public Use
  Company Number: US-SA-2013SA115614

PATIENT
  Age: 72 Year
  Sex: Female

DRUGS (1)
  1. ALLEGRA D [Suspect]
     Indication: MULTIPLE ALLERGIES
     Route: 048
     Dates: start: 20130924

REACTIONS (1)
  - Sleep disorder [Unknown]
